FAERS Safety Report 15956620 (Version 1)
Quarter: 2019Q1

REPORT INFORMATION
  Report Type: Spontaneous
  Country: JP (occurrence: JP)
  Receive Date: 20190213
  Receipt Date: 20190213
  Transmission Date: 20190417
  Serious: Yes (Hospitalization, Other)
  Sender: FDA-Public Use
  Company Number: JP-BAYER-2019-026176

PATIENT
  Age: 82 Year
  Sex: Male

DRUGS (2)
  1. XOFIGO [Suspect]
     Active Substance: RADIUM RA-223 DICHLORIDE
     Indication: HORMONE-REFRACTORY PROSTATE CANCER
     Dosage: 1 V/V, Q4WK
     Route: 042
     Dates: start: 20181129, end: 20181226
  2. XOFIGO [Suspect]
     Active Substance: RADIUM RA-223 DICHLORIDE
     Indication: METASTASES TO BONE

REACTIONS (3)
  - Metastases to bone [None]
  - Hormone-refractory prostate cancer [None]
  - Cancer pain [Recovered/Resolved]

NARRATIVE: CASE EVENT DATE: 20181226
